FAERS Safety Report 20598704 (Version 1)
Quarter: 2022Q1

REPORT INFORMATION
  Report Type: Report from Study
  Country: US (occurrence: US)
  Receive Date: 20220315
  Receipt Date: 20220315
  Transmission Date: 20220423
  Serious: Yes (Death, Hospitalization, Other)
  Sender: FDA-Public Use
  Company Number: US-ADVANZ PHARMA-202201001447

PATIENT

DRUGS (6)
  1. DIGOXIN [Suspect]
     Active Substance: DIGOXIN
     Dosage: UNK
     Route: 048
  2. DIGOXIN [Suspect]
     Active Substance: DIGOXIN
     Dosage: UNK
     Route: 065
  3. IRON [Suspect]
     Active Substance: IRON
     Dosage: UNK
     Route: 048
  4. IRON [Suspect]
     Active Substance: IRON
     Dosage: UNK
     Route: 065
  5. SALICYLATE [Suspect]
     Active Substance: SALICYLIC ACID
     Dosage: UNK
     Route: 048
  6. SALICYLATE [Suspect]
     Active Substance: SALICYLIC ACID
     Dosage: UNK
     Route: 048

REACTIONS (1)
  - Death [Fatal]
